FAERS Safety Report 8544417-2 (Version None)
Quarter: 2012Q3

REPORT INFORMATION
  Report Type: 
  Country: None (occurrence: None)
  Receive Date: 20120727
  Receipt Date: 20120720
  Transmission Date: 20120928
  Serious: Yes (Hospitalization)
  Sender: FDA-Public Use
  Company Number: US-GENZYME-POMP-1002333

PATIENT
  Sex: Female
  Weight: 75 kg

DRUGS (1)
  1. LUMIZYME [Suspect]
     Indication: GLYCOGEN STORAGE DISEASE TYPE II
     Dosage: 1050 KG, Q2W
     Route: 042

REACTIONS (1)
  - FALL [None]
